FAERS Safety Report 7427665-4 (Version None)
Quarter: 2011Q1

REPORT INFORMATION
  Report Type: 
  Country: None (occurrence: None)
  Receive Date: 20110302
  Receipt Date: 20101123
  Transmission Date: 20110831
  Serious: No
  Sender: FDA-Public Use
  Company Number: 007897

PATIENT
  Sex: Female
  Weight: 50 kg

DRUGS (3)
  1. AMBIEN [Concomitant]
  2. PROMETHAZINE [Concomitant]
  3. CIMZIA [Suspect]
     Indication: CROHN'S DISEASE
     Dosage: (400 MG 1X/4 WEEKS SUBCUTANEOUS)
     Route: 058
     Dates: start: 20090901

REACTIONS (1)
  - PREGNANCY [None]
